FAERS Safety Report 25014010 (Version 4)
Quarter: 2025Q2

REPORT INFORMATION
  Report Type: Spontaneous
  Country: PT (occurrence: PT)
  Receive Date: 20250226
  Receipt Date: 20250520
  Transmission Date: 20250717
  Serious: Yes (Other)
  Sender: SANDOZ
  Company Number: None

PATIENT
  Age: 57 Year
  Sex: Female
  Weight: 61 kg

DRUGS (1)
  1. ERELZI [Suspect]
     Active Substance: ETANERCEPT-SZZS
     Indication: Rheumatoid arthritis
     Dosage: 1 PEN PER WEEK. LOT PA5610 RELATES TO THE  DRUG BEING DISPENSED IN DECEMBER 2024 (50 MG/ML)
     Route: 058
     Dates: start: 20240809

REACTIONS (3)
  - Administration site haematoma [Unknown]
  - Administration site pain [Unknown]
  - Product quality issue [Unknown]

NARRATIVE: CASE EVENT DATE: 20240809
